FAERS Safety Report 13058323 (Version 8)
Quarter: 2017Q3

REPORT INFORMATION
  Report Type: Spontaneous
  Country: US (occurrence: US)
  Receive Date: 20161223
  Receipt Date: 20170721
  Transmission Date: 20171127
  Serious: Yes (Hospitalization, Congenital Anomaly, Other)
  Sender: FDA-Public Use
  Company Number: PHEH2016US033464

PATIENT
  Sex: Male

DRUGS (2)
  1. ZOFRAN [Suspect]
     Active Substance: ONDANSETRON HYDROCHLORIDE
     Indication: FOETAL EXPOSURE DURING PREGNANCY
     Dosage: MOTHER^S DOSE: 04 TO 08 MG/ 04 MG
     Route: 064
  2. ZOFRAN [Suspect]
     Active Substance: ONDANSETRON HYDROCHLORIDE
     Indication: FOETAL EXPOSURE DURING PREGNANCY
     Dosage: MOTHER^S DOSE: 04 MG, Q8H
     Route: 064

REACTIONS (77)
  - Right-to-left cardiac shunt [Unknown]
  - Neonatal respiratory distress syndrome [Unknown]
  - Neonatal tachypnoea [Unknown]
  - Bronchopulmonary dysplasia [Unknown]
  - Right atrial dilatation [Unknown]
  - Foetal exposure during pregnancy [Unknown]
  - Ear pain [Unknown]
  - Oropharyngeal pain [Unknown]
  - Nasal congestion [Unknown]
  - Amblyopia [Unknown]
  - Upper respiratory tract infection [Unknown]
  - Cystitis [Unknown]
  - Congenital aortic valve incompetence [Unknown]
  - Heart disease congenital [Unknown]
  - Bronchial hyperreactivity [Unknown]
  - Respiratory failure [Unknown]
  - Cardiac failure congestive [Unknown]
  - Ventricular extrasystoles [Unknown]
  - Otitis media acute [Unknown]
  - Cough [Unknown]
  - Urinary tract infection [Unknown]
  - Hypokinesia [Unknown]
  - Headache [Unknown]
  - Aortic valve stenosis [Unknown]
  - Pericardial effusion [Unknown]
  - Cardiomegaly [Unknown]
  - Patent ductus arteriosus [Unknown]
  - Left ventricular dilatation [Unknown]
  - Arrhythmia [Unknown]
  - Jaundice neonatal [Unknown]
  - Nasal injury [Unknown]
  - Atrial septal defect [Unknown]
  - Hypospadias [Unknown]
  - Ventricular septal defect [Unknown]
  - Cardiac aneurysm [Unknown]
  - Pulmonary malformation [Unknown]
  - Laryngeal stenosis [Unknown]
  - Pleural effusion [Unknown]
  - Developmental delay [Unknown]
  - Haematuria [Unknown]
  - Bicuspid aortic valve [Unknown]
  - Wolff-Parkinson-White syndrome congenital [Unknown]
  - Hypotonia neonatal [Unknown]
  - Ischaemic cardiomyopathy [Unknown]
  - Atelectasis [Unknown]
  - Cardiac murmur [Unknown]
  - Rhinorrhoea [Unknown]
  - Strabismus [Unknown]
  - Hypermetropia [Unknown]
  - Ebstein^s anomaly [Unknown]
  - Left ventricular dysfunction [Unknown]
  - Electrolyte imbalance [Unknown]
  - Abdominal pain [Unknown]
  - Seminal vesiculitis [Unknown]
  - Constipation [Unknown]
  - Cryptorchism [Unknown]
  - Pulmonary hypoplasia [Unknown]
  - Choking [Unknown]
  - Left ventricular enlargement [Unknown]
  - Asthma [Unknown]
  - Chills [Unknown]
  - Muscular weakness [Unknown]
  - Dysuria [Unknown]
  - Pyrexia [Unknown]
  - Tachycardia [Unknown]
  - Dextrocardia [Unknown]
  - Coronary artery disease [Unknown]
  - Genitalia external ambiguous [Unknown]
  - Pulmonary aplasia [Unknown]
  - Pulmonary artery stenosis congenital [Unknown]
  - Pneumonia [Unknown]
  - Urethral stenosis [Unknown]
  - Congestive cardiomyopathy [Unknown]
  - Injury [Unknown]
  - Gastrooesophageal reflux disease [Unknown]
  - Tinnitus [Unknown]
  - Dyspnoea [Unknown]
